FAERS Safety Report 8588312-1 (Version None)
Quarter: 2012Q3

REPORT INFORMATION
  Report Type: 
  Country: None (occurrence: None)
  Receive Date: 20120813
  Receipt Date: 20120801
  Transmission Date: 20120928
  Serious: Yes (Other)
  Sender: FDA-Public Use
  Company Number: US-ELI_LILLY_AND_COMPANY-US201207000745

PATIENT
  Sex: Female
  Weight: 123.81 kg

DRUGS (9)
  1. METHOTREXATE SODIUM [Concomitant]
  2. PEG-3350 AND ELECTROLYTES [Concomitant]
  3. NABUMETONE [Concomitant]
  4. CYMBALTA [Suspect]
     Indication: FIBROMYALGIA
     Dosage: 60 MG, QD
     Route: 065
  5. HYDROXYCHLOROQUINE SULFATE [Concomitant]
  6. LORAZEPAM [Concomitant]
  7. LEUCOVORIN CALCIUM [Concomitant]
  8. SULFASALAZINE [Concomitant]
  9. FOLIC ACID [Concomitant]

REACTIONS (1)
  - MENISCUS LESION [None]
